FAERS Safety Report 11312235 (Version 2)
Quarter: 2015Q3

REPORT INFORMATION
  Report Type: Spontaneous
  Country: BE (occurrence: BE)
  Receive Date: 20150727
  Receipt Date: 20150805
  Transmission Date: 20151125
  Serious: Yes (Hospitalization, Other)
  Sender: FDA-Public Use
  Company Number: BE-BAYER-2015-381664

PATIENT
  Age: 80 Year
  Sex: Male

DRUGS (10)
  1. XOFIGO [Suspect]
     Active Substance: RADIUM RA-223 DICHLORIDE
     Dosage: 3.25
     Dates: start: 20150410, end: 20150410
  2. EXFORGE [Concomitant]
     Active Substance: AMLODIPINE BESYLATE\VALSARTAN
  3. PREDNISOLON [Concomitant]
     Active Substance: PREDNISOLONE
  4. STEOVIT D3 [Concomitant]
  5. XOFIGO [Suspect]
     Active Substance: RADIUM RA-223 DICHLORIDE
     Dosage: 3.25
     Dates: start: 20150507, end: 20150507
  6. D-CURE [Concomitant]
  7. XOFIGO [Suspect]
     Active Substance: RADIUM RA-223 DICHLORIDE
     Dosage: 3.4
     Dates: start: 20150312, end: 20150312
  8. XOFIGO [Suspect]
     Active Substance: RADIUM RA-223 DICHLORIDE
     Dosage: 3.25
     Dates: start: 20150604, end: 20150604
  9. BISOPROLOL [Concomitant]
     Active Substance: BISOPROLOL
  10. PRAVASTATIN [Concomitant]
     Active Substance: PRAVASTATIN\PRAVASTATIN SODIUM

REACTIONS (2)
  - Pelvic neoplasm [None]
  - Postrenal failure [None]

NARRATIVE: CASE EVENT DATE: 20150624
